FAERS Safety Report 23130721 (Version 1)
Quarter: 2023Q4

REPORT INFORMATION
  Report Type: Spontaneous
  Country: US (occurrence: US)
  Receive Date: 20231031
  Receipt Date: 20231031
  Transmission Date: 20240110
  Serious: No
  Sender: FDA-Public Use
  Company Number: US-TARSUS PHARMACEUTICALS-TSP-US-2023-000015

PATIENT
  Age: 69 Year
  Sex: Female

DRUGS (1)
  1. XDEMVY [Suspect]
     Active Substance: LOTILANER
     Indication: Blepharitis
     Dosage: 1 DROP, BID (INTO BOTH EYES)
     Route: 047
     Dates: start: 20231005

REACTIONS (3)
  - Blepharitis [Unknown]
  - Condition aggravated [Unknown]
  - Off label use [Unknown]
